FAERS Safety Report 10080679 (Version 1)
Quarter: 2014Q2

REPORT INFORMATION
  Report Type: Spontaneous
  Country: IT (occurrence: None)
  Receive Date: 20140414
  Receipt Date: 20140414
  Transmission Date: 20141212
  Serious: Yes (Hospitalization)
  Sender: FDA-Public Use
  Company Number: 2014P1002932

PATIENT
  Age: 60 Year
  Sex: Male

DRUGS (5)
  1. PREDNISONE [Suspect]
     Indication: PROSTATE CANCER METASTATIC
     Dosage: 12.5 MG; QD
     Dates: start: 201104
  2. LUTENIZING HORMONE RELEASING HORMONE ANALOG [Suspect]
     Indication: ANTIANDROGEN THERAPY
     Dates: start: 200905
  3. BICALUTAMIDE [Suspect]
     Indication: ANTIANDROGEN THERAPY
     Dates: start: 200905, end: 201104
  4. DOCETAXEL [Suspect]
     Indication: PROSTATE CANCER METASTATIC
     Dates: start: 201110
  5. CABAZITAXEL [Suspect]
     Indication: PROSTATE CANCER METASTATIC

REACTIONS (10)
  - Photophobia [None]
  - Eye pain [None]
  - Tinnitus [None]
  - Nausea [None]
  - Visual acuity reduced [None]
  - Papilloedema [None]
  - Nuclear magnetic resonance imaging abnormal [None]
  - Intracranial pressure increased [None]
  - Weight increased [None]
  - Fluid retention [None]
